FAERS Safety Report 8555648-X (Version None)
Quarter: 2012Q3

REPORT INFORMATION
  Report Type: 
  Country: None (occurrence: None)
  Receive Date: 20120801
  Receipt Date: 20120726
  Transmission Date: 20120928
  Serious: Yes (Hospitalization, Other)
  Sender: FDA-Public Use
  Company Number: JP-BRISTOL-MYERS SQUIBB COMPANY-16540726

PATIENT
  Age: 65 Year
  Sex: Female
  Weight: 35 kg

DRUGS (9)
  1. LIPITOR [Concomitant]
     Route: 048
  2. LANSOPRAZOLE [Concomitant]
     Dosage: OD
     Route: 048
  3. AZULFIDINE [Concomitant]
     Dosage: AZULFIDINE EN
     Route: 048
  4. GLUFAST [Concomitant]
     Route: 048
  5. ALENDRONATE SODIUM [Concomitant]
     Route: 048
  6. PREDNISOLONE [Concomitant]
     Route: 048
     Dates: start: 20120323
  7. SUCRALFATE [Concomitant]
     Dosage: GRA
     Route: 048
  8. ORENCIA [Suspect]
     Indication: RHEUMATOID ARTHRITIS
     Dosage: 3 DOSES IV
     Route: 041
     Dates: start: 20120215, end: 20120316
  9. ISONIAZID [Concomitant]
     Route: 048
     Dates: start: 20120118

REACTIONS (2)
  - SEPSIS [None]
  - LOSS OF CONSCIOUSNESS [None]
